FAERS Safety Report 14374721 (Version 1)
Quarter: 2018Q1

REPORT INFORMATION
  Report Type: Spontaneous
  Country: US (occurrence: US)
  Receive Date: 20180111
  Receipt Date: 20180111
  Transmission Date: 20180509
  Serious: Yes (Death, Disabling, Other)
  Sender: FDA-Public Use
  Company Number: US-TEVA-772895USA

PATIENT
  Age: 76 Year
  Sex: Female

DRUGS (1)
  1. AMIODARONE [Suspect]
     Active Substance: AMIODARONE
     Indication: ATRIAL FIBRILLATION
     Dosage: 200 MILLIGRAM DAILY;
     Dates: start: 2007, end: 201310

REACTIONS (14)
  - Pulmonary toxicity [Fatal]
  - Depression [Unknown]
  - Off label use [Unknown]
  - Wheezing [Unknown]
  - Cough [Unknown]
  - Fatigue [Unknown]
  - Restlessness [Unknown]
  - Loss of personal independence in daily activities [Unknown]
  - Disturbance in attention [Unknown]
  - Dyspnoea [Unknown]
  - Lung disorder [Unknown]
  - Nervousness [Unknown]
  - Asthenia [Unknown]
  - Irritability [Unknown]
